FAERS Safety Report 18197483 (Version 1)
Quarter: 2020Q3

REPORT INFORMATION
  Report Type: Spontaneous
  Country: US (occurrence: US)
  Receive Date: 20200826
  Receipt Date: 20200826
  Transmission Date: 20201103
  Serious: Yes (Life-Threatening, Hospitalization, Other)
  Sender: FDA-Public Use
  Company Number: US-MYLANLABS-2020M1074291

PATIENT
  Age: 58 Year
  Sex: Male

DRUGS (1)
  1. TACROLIMUS. [Suspect]
     Active Substance: TACROLIMUS
     Indication: DERMATOMYOSITIS
     Dosage: UNK
     Route: 065
     Dates: start: 2014

REACTIONS (11)
  - Condition aggravated [Recovering/Resolving]
  - Dermatomyositis [Recovering/Resolving]
  - Diaphragmatic paralysis [Recovering/Resolving]
  - Cardio-respiratory arrest [Recovering/Resolving]
  - Nephropathy [Unknown]
  - Rebound effect [Recovering/Resolving]
  - Respiratory failure [Recovering/Resolving]
  - Hypoventilation [Recovering/Resolving]
  - Syncope [Recovering/Resolving]
  - End stage renal disease [Unknown]
  - Pulse absent [Recovering/Resolving]
